FAERS Safety Report 7377550-1 (Version None)
Quarter: 2011Q1

REPORT INFORMATION
  Report Type: 
  Country: None (occurrence: None)
  Receive Date: 20110317
  Receipt Date: 20110309
  Transmission Date: 20110831
  Serious: Yes (Death, Hospitalization)
  Sender: FDA-Public Use
  Company Number: KV200900664

PATIENT
  Age: 44 Year
  Sex: Male

DRUGS (6)
  1. MORPHINE SULFATE [Suspect]
     Indication: PAIN
     Dosage: 15 MG, 1-2 TABS Q 4 HOURS PRN, ORAL
     Route: 048
     Dates: end: 20080928
  2. KALETRA [Concomitant]
  3. VIREAD /01490001/ (TENOFOVIR) [Concomitant]
  4. MORPHINE SULFATE [Suspect]
     Indication: PAIN
     Dosage: 200 MG, TID, ORAL
     Route: 048
     Dates: end: 20080928
  5. EPIVIR [Concomitant]
  6. HYDROCORTONE [Concomitant]

REACTIONS (13)
  - DEPRESSED LEVEL OF CONSCIOUSNESS [None]
  - CHILLS [None]
  - OVERDOSE [None]
  - DYSPNOEA [None]
  - PAIN [None]
  - MALAISE [None]
  - VOMITING [None]
  - LETHARGY [None]
  - CARDIAC ARREST [None]
  - ABDOMINAL DISCOMFORT [None]
  - NAUSEA [None]
  - PYREXIA [None]
  - CONVULSION [None]
